FAERS Safety Report 25624972 (Version 2)
Quarter: 2025Q3

REPORT INFORMATION
  Report Type: Report from Study
  Country: CA (occurrence: CA)
  Receive Date: 20250731
  Receipt Date: 20250829
  Transmission Date: 20251021
  Serious: Yes (Other)
  Sender: ABBVIE
  Company Number: CA-ABBVIE-6391431

PATIENT
  Age: 55 Year
  Sex: Female
  Weight: 87.5 kg

DRUGS (1)
  1. SKYRIZI [Suspect]
     Active Substance: RISANKIZUMAB-RZAA
     Indication: Crohn^s disease
     Route: 042
     Dates: start: 20250603

REACTIONS (16)
  - Gastrointestinal pain [Recovered/Resolved]
  - Oedema mouth [Unknown]
  - Swelling face [Recovered/Resolved]
  - Body temperature increased [Recovered/Resolved]
  - Fatigue [Unknown]
  - Poor quality sleep [Unknown]
  - Restless legs syndrome [Unknown]
  - Dyspepsia [Unknown]
  - Diarrhoea [Unknown]
  - Dyspepsia [Unknown]
  - Abdominal distension [Unknown]
  - Lymphadenitis [Unknown]
  - Haematochezia [Unknown]
  - Defaecation urgency [Unknown]
  - Frequent bowel movements [Unknown]
  - Eye oedema [Unknown]

NARRATIVE: CASE EVENT DATE: 20250101
